FAERS Safety Report 5351094-0 (Version None)
Quarter: 2007Q2

REPORT INFORMATION
  Report Type: 
  Country: None (occurrence: None)
  Receive Date: 20070608
  Receipt Date: 20070531
  Transmission Date: 20071010
  Serious: Yes (Hospitalization, Other)
  Sender: FDA-Public Use
  Company Number: US-PFIZER INC-2007023695

PATIENT
  Sex: Female

DRUGS (12)
  1. NEURONTIN [Suspect]
     Dates: start: 20031101, end: 20041201
  2. ARICEPT [Suspect]
  3. METFORMIN HCL [Concomitant]
  4. LISINOPRIL [Concomitant]
  5. INSULIN [Concomitant]
  6. LANTUS [Concomitant]
  7. NPH INSULIN [Concomitant]
  8. ZYPREXA [Concomitant]
  9. MIRTAZAPINE [Concomitant]
  10. DIGOXIN [Concomitant]
  11. ACETYLSALICYLIC ACID SRT [Concomitant]
  12. OPHTHALMOLOGICALS [Concomitant]

REACTIONS (6)
  - BLINDNESS [None]
  - FALL [None]
  - FRACTURE [None]
  - GENERAL PHYSICAL HEALTH DETERIORATION [None]
  - PNEUMONIA [None]
  - URINARY TRACT INFECTION [None]
